FAERS Safety Report 8642860 (Version 2)
Quarter: 2012Q4

REPORT INFORMATION
  Report Type: Spontaneous
  Country: US (occurrence: None)
  Receive Date: 20120620
  Receipt Date: 20120822
  Transmission Date: 20130627
  Serious: Yes (Other)
  Sender: FDA-Public Use
  Company Number: TPA2012A03433

PATIENT
  Age: 67 Year
  Sex: Male

DRUGS (2)
  1. ACTOS [Suspect]
     Indication: TYPE 2 DIABETES MELLITUS
     Dates: start: 1999, end: 2007
  2. INSULIN [Concomitant]

REACTIONS (3)
  - Bladder cancer [None]
  - Renal cancer [None]
  - Transitional cell carcinoma [None]
